FAERS Safety Report 20000456 (Version 33)
Quarter: 2025Q2

REPORT INFORMATION
  Report Type: Spontaneous
  Country: CA (occurrence: CA)
  Receive Date: 20211027
  Receipt Date: 20250401
  Transmission Date: 20250717
  Serious: Yes (Hospitalization, Other)
  Sender: CELLTRION
  Company Number: CA-CELLTRION INC.-2021CA013925

PATIENT

DRUGS (12)
  1. INFLECTRA [Suspect]
     Active Substance: INFLIXIMAB-DYYB
     Indication: Crohn^s disease
     Route: 042
     Dates: start: 20210821
  2. INFLECTRA [Suspect]
     Active Substance: INFLIXIMAB-DYYB
     Route: 042
     Dates: start: 20210821
  3. INFLECTRA [Suspect]
     Active Substance: INFLIXIMAB-DYYB
     Route: 042
     Dates: start: 20210821
  4. INFLECTRA [Suspect]
     Active Substance: INFLIXIMAB-DYYB
     Route: 042
     Dates: start: 20211201
  5. INFLECTRA [Suspect]
     Active Substance: INFLIXIMAB-DYYB
     Route: 042
     Dates: start: 20220322
  6. INFLECTRA [Suspect]
     Active Substance: INFLIXIMAB-DYYB
     Route: 042
     Dates: start: 20220727
  7. INFLECTRA [Suspect]
     Active Substance: INFLIXIMAB-DYYB
     Route: 042
     Dates: start: 20220914
  8. INFLECTRA [Suspect]
     Active Substance: INFLIXIMAB-DYYB
     Route: 042
     Dates: start: 20230403
  9. INFLECTRA [Suspect]
     Active Substance: INFLIXIMAB-DYYB
     Route: 042
     Dates: start: 20231101
  10. INFLECTRA [Suspect]
     Active Substance: INFLIXIMAB-DYYB
     Route: 042
     Dates: start: 20240504
  11. INFLECTRA [Suspect]
     Active Substance: INFLIXIMAB-DYYB
     Route: 042
     Dates: start: 20250321
  12. METHOTREXATE [Concomitant]
     Active Substance: METHOTREXATE
     Indication: Crohn^s disease
     Route: 065

REACTIONS (44)
  - Skin infection [Recovered/Resolved]
  - Illness [Unknown]
  - Device related sepsis [Recovered/Resolved]
  - Intestinal obstruction [Not Recovered/Not Resolved]
  - Kidney infection [Recovered/Resolved]
  - Renal impairment [Unknown]
  - Acute kidney injury [Unknown]
  - Weight decreased [Unknown]
  - Dependence [Unknown]
  - Nephrolithiasis [Unknown]
  - Self-destructive behaviour [Unknown]
  - Scab [Unknown]
  - Loss of consciousness [Not Recovered/Not Resolved]
  - Mental disorder [Not Recovered/Not Resolved]
  - Disease progression [Not Recovered/Not Resolved]
  - Psychotic disorder [Not Recovered/Not Resolved]
  - Stent removal [Unknown]
  - Staphylococcal infection [Recovered/Resolved]
  - Pancreatitis [Unknown]
  - Condition aggravated [Recovering/Resolving]
  - Crying [Unknown]
  - Anger [Unknown]
  - Malaise [Unknown]
  - Arthralgia [Recovered/Resolved]
  - Hypertension [Unknown]
  - Stress [Unknown]
  - Post procedural complication [Not Recovered/Not Resolved]
  - Blood urine present [Unknown]
  - Vomiting [Unknown]
  - Dysarthria [Unknown]
  - Infected skin ulcer [Not Recovered/Not Resolved]
  - Illness [Not Recovered/Not Resolved]
  - Localised infection [Recovered/Resolved]
  - Infection [Recovered/Resolved]
  - Swelling [Unknown]
  - Depression [Unknown]
  - Sleep disorder [Unknown]
  - Wound [Unknown]
  - Immune system disorder [Not Recovered/Not Resolved]
  - Blood creatine increased [Unknown]
  - Blood creatinine decreased [Unknown]
  - Off label use [Unknown]
  - Inappropriate schedule of product administration [Unknown]
  - Off label use [Unknown]

NARRATIVE: CASE EVENT DATE: 20210821
